FAERS Safety Report 11067891 (Version 1)
Quarter: 2015Q2

REPORT INFORMATION
  Report Type: Spontaneous
  Country: US (occurrence: US)
  Receive Date: 20150427
  Receipt Date: 20150427
  Transmission Date: 20150821
  Serious: No
  Sender: FDA-Public Use
  Company Number: US-B.I. PHARMACEUTICALS,INC./RIDGEFIELD-2015-BI-20283BP

PATIENT
  Age: 69 Year
  Sex: Female
  Weight: 81 kg

DRUGS (8)
  1. LEVOTHYROXINE [Concomitant]
     Active Substance: LEVOTHYROXINE
     Indication: HYPOTHYROIDISM
     Dosage: 50 MCG
     Route: 048
     Dates: start: 201410
  2. PANTOPRAZOLE FOD [Concomitant]
     Indication: PROPHYLAXIS
     Dosage: 40 MG
     Route: 048
     Dates: start: 201410
  3. PRADAXA [Suspect]
     Active Substance: DABIGATRAN ETEXILATE MESYLATE
     Indication: ATRIAL FIBRILLATION
  4. SENNA PLUS [Concomitant]
     Active Substance: DOCUSATE SODIUM\SENNOSIDES\SENNOSIDES A AND B
     Indication: BOWEL MOVEMENT IRREGULARITY
     Route: 048
     Dates: start: 201410
  5. LISINOPRIL HCTZ [Concomitant]
     Active Substance: HYDROCHLOROTHIAZIDE\LISINOPRIL
     Indication: ATRIAL FIBRILLATION
     Dosage: STRENGTH: 20/25 MG; DAILY DOSE: 20/25 MG
     Route: 048
     Dates: start: 2010
  6. PRADAXA [Suspect]
     Active Substance: DABIGATRAN ETEXILATE MESYLATE
     Indication: CEREBROVASCULAR ACCIDENT PROPHYLAXIS
     Dosage: 300 MG
     Route: 048
     Dates: start: 201410
  7. VITAMIN B1 [Concomitant]
     Active Substance: THIAMINE HYDROCHLORIDE
     Indication: VITAMIN B1 DECREASED
     Dosage: 100 MG
     Route: 048
     Dates: start: 201410
  8. CARDEVILOL [Concomitant]
     Indication: ATRIAL FIBRILLATION
     Dosage: 12.5 MG
     Route: 048
     Dates: start: 2011

REACTIONS (3)
  - Peripheral swelling [Not Recovered/Not Resolved]
  - Joint swelling [Not Recovered/Not Resolved]
  - Pulse absent [Not Recovered/Not Resolved]

NARRATIVE: CASE EVENT DATE: 201411
